FAERS Safety Report 22282848 (Version 1)
Quarter: 2023Q2

REPORT INFORMATION
  Report Type: Spontaneous
  Country: US (occurrence: US)
  Receive Date: 20230504
  Receipt Date: 20230504
  Transmission Date: 20230721
  Serious: No
  Sender: FDA-Public Use
  Company Number: US-SA-SAC20230502000454

PATIENT
  Sex: Female
  Weight: 72.5 kg

DRUGS (25)
  1. DUPIXENT [Suspect]
     Active Substance: DUPILUMAB
     Indication: Dermatitis atopic
     Dosage: 300 MG, QOW
     Route: 058
     Dates: start: 201810
  2. LEVEMIR [Concomitant]
     Active Substance: INSULIN DETEMIR
     Dosage: 15IU QD
  3. COLLAGEN [Concomitant]
     Active Substance: COLLAGEN
  4. POTASSIUM [Concomitant]
     Active Substance: POTASSIUM
  5. VITAMIN E [Concomitant]
     Active Substance: .ALPHA.-TOCOPHEROL
  6. CALCIUM CARBONATE\CHOLECALCIFEROL [Concomitant]
     Active Substance: CALCIUM CARBONATE\CHOLECALCIFEROL
  7. PERCOCET [Concomitant]
     Active Substance: ACETAMINOPHEN\OXYCODONE HYDROCHLORIDE
  8. CYCLOBENZAPRINE HYDROCHLORIDE [Concomitant]
     Active Substance: CYCLOBENZAPRINE HYDROCHLORIDE
  9. ZOLPIDEM TARTRATE [Concomitant]
     Active Substance: ZOLPIDEM TARTRATE
  10. FAMOTIDINE [Concomitant]
     Active Substance: FAMOTIDINE
  11. TOPAMAX [Concomitant]
     Active Substance: TOPIRAMATE
  12. GABAPENTIN [Concomitant]
     Active Substance: GABAPENTIN
  13. PIROXICAM [Concomitant]
     Active Substance: PIROXICAM
  14. ESTRADIOL [Concomitant]
     Active Substance: ESTRADIOL
  15. TOPROL XL [Concomitant]
     Active Substance: METOPROLOL SUCCINATE
  16. PROVERA [Concomitant]
     Active Substance: MEDROXYPROGESTERONE ACETATE
  17. LIPITOR [Concomitant]
     Active Substance: ATORVASTATIN CALCIUM
  18. METFORMIN [Concomitant]
     Active Substance: METFORMIN HYDROCHLORIDE
  19. ABILIFY [Concomitant]
     Active Substance: ARIPIPRAZOLE
  20. ESOMEPRAZOLE MAGNESIUM [Concomitant]
     Active Substance: ESOMEPRAZOLE MAGNESIUM
  21. RYBELSUS [Concomitant]
     Active Substance: SEMAGLUTIDE
  22. BIOTIN [Concomitant]
     Active Substance: BIOTIN
  23. FARXIGA [Concomitant]
     Active Substance: DAPAGLIFLOZIN PROPANEDIOL
  24. MAGNESIUM [Concomitant]
     Active Substance: MAGNESIUM
  25. PROBIOTIC ACIDOPHILUS [LACTOBACILLUS ACIDOPHILUS] [Concomitant]

REACTIONS (2)
  - Dermatitis atopic [Unknown]
  - Therapeutic response shortened [Unknown]
